FAERS Safety Report 18384529 (Version 2)
Quarter: 2020Q4

REPORT INFORMATION
  Report Type: Report from Study
  Country: None (occurrence: FR)
  Receive Date: 20201015
  Receipt Date: 20201127
  Transmission Date: 20210114
  Serious: Yes (Other)
  Sender: FDA-Public Use
  Company Number: FR-ABBVIE-20K-056-3557341-00

PATIENT
  Age: 57 Year
  Sex: Male

DRUGS (6)
  1. VITAMIN B6 [Concomitant]
     Active Substance: PYRIDOXINE HYDROCHLORIDE
     Indication: SUPPLEMENTATION THERAPY
  2. VITAMIN B12 [Concomitant]
     Active Substance: CYANOCOBALAMIN
     Indication: SUPPLEMENTATION THERAPY
  3. DUODOPA [Suspect]
     Active Substance: CARBIDOPA\LEVODOPA
     Dosage: NO EXTRA DOSES?CONTINUOUS FLOW: 4.1 ML/H
     Route: 050
     Dates: start: 20201009
  4. VITAMIN B9 [Concomitant]
     Indication: PRODUCT USED FOR UNKNOWN INDICATION
  5. DUODOPA [Suspect]
     Active Substance: CARBIDOPA\LEVODOPA
     Indication: PARKINSON^S DISEASE
     Dosage: 3-4 EXTRA DOSES/DAY
     Route: 050
     Dates: start: 202007, end: 2020
  6. DUODOPA [Suspect]
     Active Substance: CARBIDOPA\LEVODOPA
     Dosage: CONTINUOUS FLOW 3.4 ML
     Route: 050
     Dates: start: 202010, end: 202010

REACTIONS (9)
  - Unevaluable event [Not Recovered/Not Resolved]
  - Emotional disorder [Recovering/Resolving]
  - Tremor [Recovering/Resolving]
  - Parkinsonian gait [Not Recovered/Not Resolved]
  - Musculoskeletal stiffness [Recovering/Resolving]
  - Dyskinesia [Recovering/Resolving]
  - Dyskinesia [Not Recovered/Not Resolved]
  - Freezing phenomenon [Recovering/Resolving]
  - Malaise [Not Recovered/Not Resolved]

NARRATIVE: CASE EVENT DATE: 2020
